FAERS Safety Report 6567543-6 (Version None)
Quarter: 2010Q1

REPORT INFORMATION
  Report Type: 
  Country: None (occurrence: None)
  Receive Date: 20100202
  Receipt Date: 20100126
  Transmission Date: 20100710
  Serious: Yes (Other)
  Sender: FDA-Public Use
  Company Number: BR-ELI_LILLY_AND_COMPANY-BR200911004904

PATIENT
  Sex: Male
  Weight: 114 kg

DRUGS (10)
  1. BYETTA [Suspect]
     Indication: TYPE 2 DIABETES MELLITUS
     Dosage: 5 UG, 2/D
     Route: 065
     Dates: start: 20091022
  2. BYETTA [Suspect]
     Dosage: 10 UG, UNKNOWN
     Route: 058
  3. BYETTA [Suspect]
     Dosage: 10 UG, DAILY (1/D)
     Route: 058
  4. ENALAPRIL MALEATE [Concomitant]
     Indication: BLOOD PRESSURE
     Dosage: 20 MG, DAILY (1/D)
     Route: 048
     Dates: start: 20090401
  5. HYDROCHLOROTHIAZIDE [Concomitant]
     Dosage: UNK, DAILY (1/D)
     Route: 048
     Dates: start: 20090401
  6. AMIODARONE HYDROCHLORIDE [Concomitant]
     Indication: HYPERTENSION
     Dosage: UNK, DAILY (1/D)
     Route: 048
     Dates: start: 20090401
  7. METFORMIN HCL [Concomitant]
     Indication: DIABETES MELLITUS
     Dosage: 1500 MG, DAILY (1/D)
     Route: 048
     Dates: start: 20050101
  8. AMARYL [Concomitant]
     Dosage: UNK, UNKNOWN
     Route: 065
  9. INSULIN [Concomitant]
     Dosage: 12 IU, UNKNOWN
     Route: 065
  10. NATRILIX SR [Concomitant]
     Indication: BLOOD PRESSURE
     Dosage: UNK, DAILY (1/D)
     Route: 048
     Dates: start: 20090401

REACTIONS (6)
  - ASTHENIA [None]
  - HYPOGLYCAEMIA [None]
  - HYPOTENSION [None]
  - OFF LABEL USE [None]
  - RETCHING [None]
  - WEIGHT DECREASED [None]
